FAERS Safety Report 9789405 (Version 2)
Quarter: 2013Q4

REPORT INFORMATION
  Report Type: Spontaneous
  Country: ES (occurrence: ES)
  Receive Date: 20131231
  Receipt Date: 20131231
  Transmission Date: 20140711
  Serious: Yes (Disabling, Other)
  Sender: FDA-Public Use
  Company Number: ES-ABBVIE-13P-144-1103400-00

PATIENT
  Age: 30 Year
  Sex: Female
  Weight: 41 kg

DRUGS (13)
  1. HUMIRA VIAL [Suspect]
     Indication: VISUAL IMPAIRMENT
     Route: 058
     Dates: start: 20130529
  2. OMEPRAZOL [Concomitant]
     Indication: GASTROOESOPHAGEAL REFLUX DISEASE
     Route: 048
     Dates: start: 201305
  3. PREDNISONA [Concomitant]
     Indication: PRODUCT USED FOR UNKNOWN INDICATION
     Route: 048
     Dates: end: 20130607
  4. PREDNISONA [Concomitant]
     Route: 048
     Dates: start: 20130607
  5. TARGIN [Concomitant]
     Indication: PAIN
     Route: 048
     Dates: start: 20131002
  6. FLURPAX [Concomitant]
     Indication: MIGRAINE
     Route: 048
  7. PREDNISONE [Concomitant]
     Indication: RHEUMATOID ARTHRITIS
     Dates: start: 201305
  8. ARCOXIA [Concomitant]
     Indication: RHEUMATOID ARTHRITIS
     Route: 048
     Dates: start: 201305
  9. ADALGUR [Concomitant]
     Indication: MUSCLE SPASMS
     Route: 048
     Dates: start: 201305
  10. PAROXETINE [Concomitant]
     Indication: ANXIETY
  11. LINELLE [Concomitant]
     Indication: CONTRACEPTION
     Route: 048
  12. LINELLE [Concomitant]
     Indication: PROPHYLAXIS
  13. PRIMPERAN [Concomitant]
     Indication: VOMITING
     Dates: start: 20131002

REACTIONS (10)
  - Iridocyclitis [Unknown]
  - Visual impairment [Unknown]
  - Vision blurred [Unknown]
  - Blindness [Unknown]
  - Rheumatoid arthritis [Unknown]
  - Rheumatoid arthritis [Unknown]
  - Rheumatoid arthritis [Unknown]
  - Rheumatoid arthritis [Unknown]
  - Rheumatoid arthritis [Unknown]
  - Uveitis [Recovering/Resolving]
